FAERS Safety Report 10869930 (Version 1)
Quarter: 2015Q1

REPORT INFORMATION
  Report Type: Report from Study
  Country: CA (occurrence: CA)
  Receive Date: 20150226
  Receipt Date: 20150226
  Transmission Date: 20150721
  Serious: Yes (Other)
  Sender: FDA-Public Use
  Company Number: CA-JNJFOC-20150215722

PATIENT
  Sex: Male

DRUGS (1)
  1. REMICADE [Suspect]
     Active Substance: INFLIXIMAB
     Indication: COLITIS ULCERATIVE
     Route: 042

REACTIONS (9)
  - Frequent bowel movements [Not Recovered/Not Resolved]
  - Pallor [Unknown]
  - Feeding disorder [Unknown]
  - Drug ineffective [Unknown]
  - Weight decreased [Not Recovered/Not Resolved]
  - Fatigue [Unknown]
  - Clostridium difficile infection [Unknown]
  - Haematochezia [Not Recovered/Not Resolved]
  - Malaise [Unknown]
